FAERS Safety Report 15307443 (Version 1)
Quarter: 2018Q3

REPORT INFORMATION
  Report Type: Spontaneous
  Country: US (occurrence: US)
  Receive Date: 20180810
  Receipt Date: 20180810
  Transmission Date: 20181010
  Serious: No
  Sender: FDA-Public Use
  Company Number: None

PATIENT
  Age: 29 Year
  Sex: Female
  Weight: 70.9 kg

DRUGS (5)
  1. OCRELIZUMAB. [Concomitant]
     Active Substance: OCRELIZUMAB
     Dates: start: 20180807
  2. DIPHENHYDRAMINE. [Suspect]
     Active Substance: DIPHENHYDRAMINE
     Indication: PREMEDICATION
     Route: 042
     Dates: start: 20180807, end: 20180807
  3. ACETAMINOPHEN. [Concomitant]
     Active Substance: ACETAMINOPHEN
     Dates: start: 20180807
  4. FAMOTIDINE. [Concomitant]
     Active Substance: FAMOTIDINE
     Dates: start: 20180807
  5. METHYLPREDNISOLONE. [Concomitant]
     Active Substance: METHYLPREDNISOLONE
     Dates: start: 20180807

REACTIONS (4)
  - Infusion site pain [None]
  - Seizure [None]
  - Unresponsive to stimuli [None]
  - Fatigue [None]

NARRATIVE: CASE EVENT DATE: 20180807
